FAERS Safety Report 13199206 (Version 2)
Quarter: 2018Q1

REPORT INFORMATION
  Report Type: Spontaneous
  Country: CA (occurrence: CA)
  Receive Date: 20170208
  Receipt Date: 20180207
  Transmission Date: 20180508
  Serious: Yes (Other)
  Sender: FDA-Public Use
  Company Number: CA-SA-2017SA018058

PATIENT
  Age: 74 Year
  Sex: Female
  Weight: 116 kg

DRUGS (1)
  1. DOCETAXEL. [Suspect]
     Active Substance: DOCETAXEL
     Indication: BREAST CANCER FEMALE
     Route: 042
     Dates: start: 20150827

REACTIONS (4)
  - Anxiety [Unknown]
  - Dyspnoea [Unknown]
  - Flushing [Unknown]
  - Chest pain [Unknown]

NARRATIVE: CASE EVENT DATE: 20150827
